FAERS Safety Report 13145252 (Version 29)
Quarter: 2019Q1

REPORT INFORMATION
  Report Type: Spontaneous
  Country: CA (occurrence: CA)
  Receive Date: 20170124
  Receipt Date: 20190218
  Transmission Date: 20190417
  Serious: Yes (Disabling, Other)
  Sender: FDA-Public Use
  Company Number: CA-CELLTRION INC.-2017CA000732

PATIENT

DRUGS (20)
  1. INFLECTRA [Suspect]
     Active Substance: INFLIXIMAB-DYYB
     Dosage: 300 MG, EVERY 6 WEEKS FOR 12 MONTHS
     Route: 042
     Dates: start: 20180716
  2. INFLECTRA [Suspect]
     Active Substance: INFLIXIMAB-DYYB
     Dosage: 300 MG, EVERY 6 WEEKS
     Route: 042
     Dates: start: 20181119
  3. LAX-A-DAY [Concomitant]
     Indication: CONSTIPATION
     Dosage: UNK
  4. INFLECTRA [Suspect]
     Active Substance: INFLIXIMAB-DYYB
     Indication: COLITIS
     Dosage: 300 MG, EVERY 8 WEEKS
     Route: 042
     Dates: start: 20170818, end: 2017
  5. INFLECTRA [Suspect]
     Active Substance: INFLIXIMAB-DYYB
     Dosage: 300 MG, EVERY 8 WEEKS
     Route: 042
     Dates: start: 20180406, end: 20180406
  6. ESCITALOPRAM [Concomitant]
     Active Substance: ESCITALOPRAM OXALATE
     Indication: ANXIETY
     Dosage: 10 MG, DAILY
  7. INFLECTRA [Suspect]
     Active Substance: INFLIXIMAB-DYYB
     Dosage: 500 MG, UNK
     Route: 042
     Dates: start: 2017
  8. INFLECTRA [Suspect]
     Active Substance: INFLIXIMAB-DYYB
     Dosage: 300 MG, EVERY 8 WEEKS
     Route: 042
     Dates: start: 20180604, end: 20180604
  9. OXAZEPAM. [Concomitant]
     Active Substance: OXAZEPAM
     Indication: SLEEP DISORDER
     Dosage: 30 MG, (1-2 TABLETS) ONCE DAILY FOR SLEEP
     Route: 048
  10. INFLECTRA [Suspect]
     Active Substance: INFLIXIMAB-DYYB
     Dosage: 300 MG, EVERY 6 WEEKS
     Route: 042
     Dates: start: 20190107
  11. INFLECTRA [Suspect]
     Active Substance: INFLIXIMAB-DYYB
     Dosage: 300 MG, EVERY 8 WEEKS
     Route: 042
     Dates: start: 2017, end: 20171012
  12. INFLECTRA [Suspect]
     Active Substance: INFLIXIMAB-DYYB
     Dosage: 300 MG, EVERY 8 WEEKS
     Route: 042
     Dates: start: 20171012, end: 20171012
  13. PANTOPRAZOLE [Concomitant]
     Active Substance: PANTOPRAZOLE
     Dosage: 40 MG, ONCE A DAY
     Route: 048
  14. VITAMIN D [Concomitant]
     Active Substance: CHOLECALCIFEROL
     Dosage: 1000 UNITS, ONCE PER DAY
     Route: 048
  15. INFLECTRA [Suspect]
     Active Substance: INFLIXIMAB-DYYB
     Indication: COLITIS ULCERATIVE
     Dosage: 500 MG, 0, 2, 6, THEN EVERY 8 WEEKS
     Route: 042
     Dates: start: 20170104, end: 20170614
  16. INFLECTRA [Suspect]
     Active Substance: INFLIXIMAB-DYYB
     Dosage: 300 MG, 0, 2, 6, THEN EVERY 8 WEEKS
     Route: 042
     Dates: start: 20170818, end: 20180604
  17. PREDNISONE. [Concomitant]
     Active Substance: PREDNISONE
     Dosage: 30 MG, DAILY (TAPERING OFF IN 10 DAYS AT 5MG PER WEEK UNTIL COMPLETED)
     Route: 048
  18. CALCIUM CARBONATE. [Concomitant]
     Active Substance: CALCIUM CARBONATE
     Dosage: 1000 MG, ONCE A DAY
     Route: 048
  19. INFLECTRA [Suspect]
     Active Substance: INFLIXIMAB-DYYB
     Dosage: 300 MG EVERY 8 WEEKS
     Route: 042
     Dates: start: 20171208, end: 20171208
  20. INFLECTRA [Suspect]
     Active Substance: INFLIXIMAB-DYYB
     Dosage: 600 MG, EVERY 8 WEEKS OR INCREASE DOSE FREQUENCY TO EVERY 4 WEEKS
     Route: 042

REACTIONS (19)
  - Gastrointestinal inflammation [Unknown]
  - Heart rate increased [Unknown]
  - Iron deficiency [Unknown]
  - Disease recurrence [Recovered/Resolved]
  - Product use issue [Unknown]
  - White blood cells urine positive [Unknown]
  - Condition aggravated [Recovering/Resolving]
  - Constipation [Unknown]
  - Haemoglobin urine present [Unknown]
  - Stress [Unknown]
  - C-reactive protein increased [Unknown]
  - Nausea [Unknown]
  - Weight increased [Not Recovered/Not Resolved]
  - Psoriasis [Recovered/Resolved]
  - Dyschezia [Unknown]
  - Vomiting [Unknown]
  - Fatigue [Unknown]
  - Malaise [Recovering/Resolving]
  - Red cell distribution width increased [Unknown]

NARRATIVE: CASE EVENT DATE: 201701
